FAERS Safety Report 16694926 (Version 1)
Quarter: 2019Q3

REPORT INFORMATION
  Report Type: Spontaneous
  Country: US (occurrence: US)
  Receive Date: 20190626
  Receipt Date: 20190626
  Transmission Date: 20191004
  Serious: No
  Sender: FDA-Public Use
  Company Number: None

PATIENT
  Age: 56 Year
  Sex: Male

DRUGS (4)
  1. XIFAXAN [Concomitant]
     Active Substance: RIFAXIMIN
  2. VITAMIN D [Concomitant]
     Active Substance: VITAMIN D NOS
  3. SOFOSBUVIR-VELPATASVIR [Suspect]
     Active Substance: SOFOSBUVIR\VELPATASVIR
     Indication: CHRONIC HEPATITIS C
     Route: 048
     Dates: start: 20190506
  4. RIBAVIRIN 200MG [Suspect]
     Active Substance: RIBAVIRIN
     Indication: CHRONIC HEPATITIS C
     Route: 048
     Dates: start: 20190506

REACTIONS (1)
  - Transient ischaemic attack [None]
